FAERS Safety Report 9441190 (Version 2)
Quarter: 2013Q3

REPORT INFORMATION
  Report Type: Other
  Country: GB (occurrence: GB)
  Receive Date: 20130805
  Receipt Date: 20130905
  Transmission Date: 20140515
  Serious: Yes (Hospitalization, Other)
  Sender: FDA-Public Use
  Company Number: GB-PERRIGO-13GB007839

PATIENT
  Age: 37 Year
  Sex: Male

DRUGS (5)
  1. LORATADINE 16028/0081 10 MG [Suspect]
     Indication: SEASONAL ALLERGY
     Dosage: UNK, UNK
     Route: 048
  2. EPILIM CHRONO [Suspect]
     Indication: EPILEPSY
     Dosage: 500 MG, QD
     Route: 048
     Dates: start: 201307
  3. EPILIM CHRONO [Suspect]
     Dosage: 500 MG, QD
     Route: 048
  4. CETIRIZINE [Concomitant]
     Indication: SEASONAL ALLERGY
     Dosage: 10 MG, QD
     Route: 048
  5. FLUOXETINE [Concomitant]
     Indication: PRODUCT USED FOR UNKNOWN INDICATION
     Dosage: 20 MG, QD
     Route: 048

REACTIONS (3)
  - Convulsion [Recovered/Resolved]
  - Drug dispensing error [Unknown]
  - Drug interaction [Recovered/Resolved]
